FAERS Safety Report 25015449 (Version 1)
Quarter: 2025Q1

REPORT INFORMATION
  Report Type: Spontaneous
  Country: PT (occurrence: PT)
  Receive Date: 20250227
  Receipt Date: 20250227
  Transmission Date: 20250409
  Serious: Yes (Other)
  Sender: ABBVIE
  Company Number: PT-MLMSERVICE-20250213-PI408888-00117-1

PATIENT
  Age: 33 Year
  Sex: Female

DRUGS (9)
  1. DEXAMETHASONE [Suspect]
     Active Substance: DEXAMETHASONE
     Indication: Keratoconus
     Route: 047
  2. DEXAMETHASONE [Suspect]
     Active Substance: DEXAMETHASONE
     Indication: Keratoconus
     Dosage: DOSE REDUCED
     Route: 047
  3. DEXAMETHASONE [Suspect]
     Active Substance: DEXAMETHASONE
     Indication: Keratoconus
     Route: 047
  4. Estrone;Progesterone [Concomitant]
     Indication: Contraception
  5. CYCLOPENTOLATE [Concomitant]
     Active Substance: CYCLOPENTOLATE
     Indication: Keratoconus
     Route: 065
  6. SODIUM CHLORIDE [Concomitant]
     Active Substance: SODIUM CHLORIDE
     Indication: Keratoconus
     Route: 065
  7. HYALURONIC ACID [Concomitant]
     Active Substance: HYALURONIC ACID
     Indication: Keratoconus
     Route: 047
  8. OFLOXACIN [Concomitant]
     Active Substance: OFLOXACIN
     Indication: Keratoconus
     Route: 047
  9. OFLOXACIN [Concomitant]
     Active Substance: OFLOXACIN
     Indication: Keratoconus
     Dosage: DOSE REDUCED
     Route: 047

REACTIONS (3)
  - Corneal perforation [Recovering/Resolving]
  - Herpes ophthalmic [Recovering/Resolving]
  - Mycobacterium chelonae infection [Recovering/Resolving]
